FAERS Safety Report 14567022 (Version 1)
Quarter: 2018Q1

REPORT INFORMATION
  Report Type: Report from Study
  Country: US (occurrence: US)
  Receive Date: 20180223
  Receipt Date: 20180223
  Transmission Date: 20180509
  Serious: Yes (Hospitalization)
  Sender: FDA-Public Use
  Company Number: US-ASTRAZENECA-2017SF00659

PATIENT
  Age: 24477 Day
  Sex: Male
  Weight: 133.8 kg

DRUGS (6)
  1. DEXAMETHASONE. [Suspect]
     Active Substance: DEXAMETHASONE
     Indication: PLASMA CELL MYELOMA
     Route: 048
     Dates: start: 20170831, end: 20170921
  2. MEDI4736 (DURVALUMAB) [Suspect]
     Active Substance: DURVALUMAB
     Indication: PLASMA CELL MYELOMA
     Route: 041
     Dates: start: 20170801, end: 20170801
  3. DEXAMETHASONE. [Suspect]
     Active Substance: DEXAMETHASONE
     Indication: PLASMA CELL MYELOMA
     Route: 048
     Dates: start: 20170801, end: 20170822
  4. POMALIDOMIDE [Suspect]
     Active Substance: POMALIDOMIDE
     Indication: PLASMA CELL MYELOMA
     Route: 048
     Dates: start: 20170801, end: 20170821
  5. POMALIDOMIDE [Suspect]
     Active Substance: POMALIDOMIDE
     Indication: PLASMA CELL MYELOMA
     Route: 048
     Dates: start: 20170831, end: 20170920
  6. MEDI4736 (DURVALUMAB) [Suspect]
     Active Substance: DURVALUMAB
     Indication: PLASMA CELL MYELOMA
     Route: 041
     Dates: start: 20170831, end: 20170831

REACTIONS (1)
  - Transient ischaemic attack [Recovered/Resolved]

NARRATIVE: CASE EVENT DATE: 20170920
